FAERS Safety Report 4633306-1 (Version None)
Quarter: 2005Q2

REPORT INFORMATION
  Report Type: 
  Country: None (occurrence: None)
  Receive Date: 20050408
  Receipt Date: 20050324
  Transmission Date: 20051028
  Serious: Yes (Hospitalization)
  Sender: FDA-Public Use
  Company Number: 2005-0008138

PATIENT
  Age: 35 Year
  Sex: Male

DRUGS (10)
  1. TENOFOVIR DISOPROXIL FUMARATE (TENOFOVIR DISOPROXIL FUMARATE) [Suspect]
     Indication: HIV INFECTION
     Dosage: 300 MG, 1 IN 1 D, ORAL
     Route: 048
     Dates: start: 20020418, end: 20050224
  2. VIDEX [Suspect]
     Indication: HIV INFECTION
     Dosage: 400 MG, 1 IN 1 D, ORAL
     Route: 048
     Dates: start: 20020418, end: 20050224
  3. KALETRA [Suspect]
     Indication: HIV INFECTION
     Dosage: 1 IN 1 D, ORAL
     Route: 048
     Dates: start: 20020402, end: 20050224
  4. NORTRIPTYLINE HCL [Concomitant]
  5. ENTEX PSE (RESPAIRE-SR-1-20) [Concomitant]
  6. BACTRIM [Concomitant]
  7. AVELOX [Concomitant]
  8. DIFLUCAN [Concomitant]
  9. PHENERGAN [Concomitant]
  10. VITAMIN B COMPLEX (B-COMPLEX ^LECIVA^) [Concomitant]

REACTIONS (17)
  - ASPARTATE AMINOTRANSFERASE INCREASED [None]
  - BLOOD ALKALINE PHOSPHATASE INCREASED [None]
  - BLOOD BILIRUBIN INCREASED [None]
  - CONSTIPATION [None]
  - DEHYDRATION [None]
  - DIVERTICULUM DUODENAL [None]
  - ELECTROCARDIOGRAM ABNORMAL [None]
  - GAMMA-GLUTAMYLTRANSFERASE INCREASED [None]
  - HIATUS HERNIA [None]
  - HYPERLACTACIDAEMIA [None]
  - LIVER FUNCTION TEST ABNORMAL [None]
  - NAUSEA [None]
  - PO2 INCREASED [None]
  - SINUS TACHYCARDIA [None]
  - VENTRICULAR HYPERTROPHY [None]
  - VOMITING [None]
  - WEIGHT DECREASED [None]
